FAERS Safety Report 4676368-8 (Version None)
Quarter: 2005Q2

REPORT INFORMATION
  Report Type: 
  Country: None (occurrence: None)
  Receive Date: 20050527
  Receipt Date: 20050228
  Transmission Date: 20051028
  Serious: No
  Sender: FDA-Public Use
  Company Number: US-GLAXOSMITHKLINE-A0547566A

PATIENT
  Sex: Female

DRUGS (10)
  1. WELLBUTRIN XL [Suspect]
     Indication: DEPRESSION
     Dosage: 300MG PER DAY
     Route: 048
     Dates: start: 20041201
  2. WELLBUTRIN SR [Suspect]
     Indication: DEPRESSION
     Dosage: 150MG PER DAY
     Route: 048
  3. DEXEDRINE [Suspect]
  4. PAXIL [Concomitant]
  5. PROGESTERONE CREAM [Concomitant]
  6. TENORMIN [Concomitant]
  7. KLONOPIN [Concomitant]
  8. FIORICET [Concomitant]
  9. VICODIN [Concomitant]
  10. ACYCLOVIR [Concomitant]

REACTIONS (5)
  - ADVERSE EVENT [None]
  - BRUXISM [None]
  - FEELING HOT [None]
  - INSOMNIA [None]
  - RASH [None]
